FAERS Safety Report 24664904 (Version 2)
Quarter: 2024Q4

REPORT INFORMATION
  Report Type: Spontaneous
  Country: US (occurrence: US)
  Receive Date: 20241126
  Receipt Date: 20241205
  Transmission Date: 20250114
  Serious: Yes (Other)
  Sender: PFIZER
  Company Number: US-PFIZER INC-PV202400152394

PATIENT
  Sex: Male

DRUGS (1)
  1. ELRANATAMAB [Suspect]
     Active Substance: ELRANATAMAB
     Indication: Plasma cell myeloma
     Dosage: 76 MG
     Route: 058

REACTIONS (3)
  - Neuropathy peripheral [Recovered/Resolved]
  - Movement disorder [Recovered/Resolved]
  - Mobility decreased [Recovered/Resolved]
